FAERS Safety Report 9153085 (Version 1)
Quarter: 2013Q1

REPORT INFORMATION
  Report Type: Spontaneous
  Country: US (occurrence: None)
  Receive Date: 20130304
  Receipt Date: 20130304
  Transmission Date: 20140127
  Serious: Yes (Life-Threatening, Hospitalization)
  Sender: FDA-Public Use
  Company Number: None

PATIENT
  Age: 66 Year
  Sex: Male
  Weight: 83.78 kg

DRUGS (1)
  1. XARELTO 20MG JANSSEN [Suspect]
     Indication: ATRIAL FIBRILLATION
     Route: 048
     Dates: start: 20120814, end: 20130116

REACTIONS (3)
  - Pericardial effusion [None]
  - Syncope [None]
  - Cardiac tamponade [None]
